FAERS Safety Report 24784633 (Version 2)
Quarter: 2025Q1

REPORT INFORMATION
  Report Type: Report from Study
  Country: AE (occurrence: AE)
  Receive Date: 20241227
  Receipt Date: 20250206
  Transmission Date: 20250408
  Serious: Yes (Death, Hospitalization, Other)
  Sender: GILEAD
  Company Number: AE-GILEAD-2024-0694285

PATIENT
  Age: 44 Year
  Sex: Female

DRUGS (1)
  1. SACITUZUMAB GOVITECAN-HZIY [Suspect]
     Active Substance: SACITUZUMAB GOVITECAN-HZIY
     Indication: Triple negative breast cancer
     Route: 042
     Dates: start: 20240629, end: 20241105

REACTIONS (3)
  - Death [Fatal]
  - Infection [Recovering/Resolving]
  - Neoplasm malignant [Recovering/Resolving]

NARRATIVE: CASE EVENT DATE: 20250103
